FAERS Safety Report 16114622 (Version 2)
Quarter: 2019Q3

REPORT INFORMATION
  Report Type: Spontaneous
  Country: NO (occurrence: NO)
  Receive Date: 20190325
  Receipt Date: 20190801
  Transmission Date: 20191004
  Serious: Yes (Hospitalization, Other)
  Sender: FDA-Public Use
  Company Number: NO-BAYER-2019-053962

PATIENT
  Age: 31 Year
  Sex: Female

DRUGS (2)
  1. MIRENA [Suspect]
     Active Substance: LEVONORGESTREL
     Dosage: 20 MCG/24HR, CONT
     Route: 015
  2. MIRENA [Suspect]
     Active Substance: LEVONORGESTREL

REACTIONS (12)
  - Breast cancer female [Recovered/Resolved]
  - Headache [None]
  - Malabsorption [None]
  - Oral fungal infection [None]
  - Gastric disorder [Recovered/Resolved]
  - Pregnancy with contraceptive device [Recovered/Resolved]
  - Drug ineffective [None]
  - Fatigue [Recovered/Resolved]
  - Blood pressure increased [None]
  - Urinary tract infection [None]
  - Dehydration [None]
  - Dysphagia [None]

NARRATIVE: CASE EVENT DATE: 201610
